FAERS Safety Report 14283185 (Version 4)
Quarter: 2018Q1

REPORT INFORMATION
  Report Type: Report from Study
  Country: US (occurrence: US)
  Receive Date: 20171213
  Receipt Date: 20180321
  Transmission Date: 20180508
  Serious: Yes (Life-Threatening, Hospitalization)
  Sender: FDA-Public Use
  Company Number: PHHY2017US184684

PATIENT
  Age: 16 Year
  Sex: Female

DRUGS (4)
  1. METHOTREXATE. [Suspect]
     Active Substance: METHOTREXATE
     Indication: B PRECURSOR TYPE ACUTE LEUKAEMIA
     Dosage: 180 MG, ONCE/SINGLE
     Route: 042
     Dates: start: 20170515, end: 20171106
  2. INC424A [Suspect]
     Active Substance: RUXOLITINIB
     Indication: B PRECURSOR TYPE ACUTE LEUKAEMIA
     Dosage: 70 MG, QD
     Route: 048
     Dates: start: 20170313, end: 20171201
  3. VINCRISTINE [Suspect]
     Active Substance: VINCRISTINE
     Indication: B PRECURSOR TYPE ACUTE LEUKAEMIA
     Dosage: 1 MG, ONCE/SINGLE
     Route: 042
     Dates: start: 20170327, end: 20171201
  4. POSACONAZOLE [Suspect]
     Active Substance: POSACONAZOLE
     Indication: FUNGAL INFECTION
     Dosage: 300 MG, QD
     Route: 048
     Dates: start: 20171013

REACTIONS (7)
  - Lung infection [Recovered/Resolved]
  - Respiratory failure [Recovered/Resolved]
  - Venoocclusive liver disease [Recovered/Resolved]
  - Soft tissue infection [Recovered/Resolved]
  - Blood bilirubin increased [Recovered/Resolved]
  - Bacteraemia [Recovered/Resolved]
  - Sinusitis fungal [Not Recovered/Not Resolved]

NARRATIVE: CASE EVENT DATE: 20171202
